FAERS Safety Report 7885038-4 (Version None)
Quarter: 2011Q4

REPORT INFORMATION
  Report Type: 
  Country: None (occurrence: None)
  Receive Date: 20111102
  Receipt Date: 20111020
  Transmission Date: 20120403
  Serious: Yes (Other)
  Sender: FDA-Public Use
  Company Number: NL-MYLANLABS-2011S1021851

PATIENT
  Age: 39 Year
  Sex: Female
  Weight: 79 kg

DRUGS (1)
  1. VENLAFAXINE [Suspect]
     Indication: DEPRESSION
     Dosage: 225 MG
     Route: 048
     Dates: start: 20101201, end: 20110929

REACTIONS (11)
  - HYPERHIDROSIS [None]
  - DRUG WITHDRAWAL SYNDROME [None]
  - WEIGHT INCREASED [None]
  - LOSS OF LIBIDO [None]
  - ABNORMAL DREAMS [None]
  - SOMNOLENCE [None]
  - INFLUENZA LIKE ILLNESS [None]
  - BACK PAIN [None]
  - POLYURIA [None]
  - ASTHENIA [None]
  - NERVOUSNESS [None]
